FAERS Safety Report 26119684 (Version 1)
Quarter: 2025Q4

REPORT INFORMATION
  Report Type: Spontaneous
  Country: US (occurrence: US)
  Receive Date: 20251204
  Receipt Date: 20251204
  Transmission Date: 20260118
  Serious: Yes (Hospitalization)
  Sender: INSMED
  Company Number: US-INSMED, INC.-2025-07483-US

PATIENT
  Age: 64 Year
  Sex: Female
  Weight: 61.224 kg

DRUGS (1)
  1. BRINSUPRI [Suspect]
     Active Substance: BRENSOCATIB
     Indication: Bronchiectasis
     Dosage: 25 MILLIGRAM, QD
     Route: 048
     Dates: start: 20251028

REACTIONS (1)
  - Dyspnoea [Recovered/Resolved]

NARRATIVE: CASE EVENT DATE: 20251111
